FAERS Safety Report 5210450-1 (Version None)
Quarter: 2007Q1

REPORT INFORMATION
  Report Type: 
  Country: None (occurrence: None)
  Receive Date: 20070117
  Receipt Date: 20070110
  Transmission Date: 20070707
  Serious: Yes (Hospitalization)
  Sender: FDA-Public Use
  Company Number: US-BRISTOL-MYERS SQUIBB COMPANY-13637319

PATIENT
  Sex: Female

DRUGS (2)
  1. DEFINITY [Suspect]
     Indication: ECHOCARDIOGRAM
  2. CARDIAC MEDICATIONS [Concomitant]

REACTIONS (6)
  - BACK PAIN [None]
  - BLOOD PRESSURE DECREASED [None]
  - DYSPNOEA [None]
  - HEADACHE [None]
  - PULSE PRESSURE DECREASED [None]
  - TONIC CLONIC MOVEMENTS [None]
